FAERS Safety Report 6834247-1 (Version None)
Quarter: 2010Q3

REPORT INFORMATION
  Report Type: 
  Country: None (occurrence: None)
  Receive Date: 20100712
  Receipt Date: 20070416
  Transmission Date: 20110219
  Serious: No
  Sender: FDA-Public Use
  Company Number: US-PFIZER INC-2007030784

PATIENT
  Sex: Female

DRUGS (7)
  1. CHANTIX [Suspect]
     Indication: SMOKING CESSATION THERAPY
     Route: 048
     Dates: start: 20070321
  2. OXYGEN [Concomitant]
  3. WARFARIN SODIUM [Concomitant]
  4. DIGITEK [Concomitant]
  5. ANXIOLYTICS [Concomitant]
  6. ALBUTEROL [Concomitant]
     Route: 055
  7. DUONEB [Concomitant]
     Route: 055

REACTIONS (5)
  - ASTHENIA [None]
  - DECREASED APPETITE [None]
  - INITIAL INSOMNIA [None]
  - POLLAKIURIA [None]
  - WEIGHT DECREASED [None]
